FAERS Safety Report 8854040 (Version 1)
Quarter: 2012Q4

REPORT INFORMATION
  Report Type: 
  Country: BR (occurrence: BR)
  Receive Date: 20121022
  Receipt Date: 20121022
  Transmission Date: 20130627
  Serious: Yes (Other)
  Sender: FDA-Public Use
  Company Number: PHHY2012BR093984

PATIENT
  Sex: Female
  Weight: 83 kg

DRUGS (2)
  1. FEMARA [Suspect]
     Dosage: 2.5 mg, daily
     Route: 048
     Dates: start: 201109
  2. FEMARA [Suspect]
     Dosage: UKN
     Route: 048

REACTIONS (1)
  - Breast mass [Unknown]
